FAERS Safety Report 5593584-1 (Version None)
Quarter: 2008Q1

REPORT INFORMATION
  Report Type: 
  Country: None (occurrence: None)
  Receive Date: 20080116
  Receipt Date: 20080108
  Transmission Date: 20080703
  Serious: Yes (Other)
  Sender: FDA-Public Use
  Company Number: IE-ABBOTT-08P-229-0432763-00

PATIENT
  Age: 26 Year
  Sex: Female

DRUGS (2)
  1. KLACID [Suspect]
     Indication: HELICOBACTER INFECTION
     Dates: end: 20071224
  2. METRONIDAZOLE [Concomitant]
     Indication: DRUG USE FOR UNKNOWN INDICATION

REACTIONS (3)
  - PANCREATIC DISORDER [None]
  - PRURITUS [None]
  - WEIGHT DECREASED [None]
